FAERS Safety Report 6039314-0 (Version None)
Quarter: 2009Q1

REPORT INFORMATION
  Report Type: 
  Country: None (occurrence: None)
  Receive Date: 20090115
  Receipt Date: 20090108
  Transmission Date: 20090719
  Serious: No
  Sender: FDA-Public Use
  Company Number: US-B.I. PHARMACEUTICALS,INC./RIDGEFIELD-2009-BP-00356BP

PATIENT
  Sex: Female

DRUGS (7)
  1. SPIRIVA [Suspect]
     Indication: EMPHYSEMA
     Dosage: 18MCG
     Route: 055
     Dates: start: 20060101
  2. COZAAR [Concomitant]
     Indication: HYPERTENSION
     Dosage: 100MG
     Route: 048
     Dates: start: 19990101
  3. NORVASC [Concomitant]
     Indication: HYPERTENSION
     Dosage: 100MG
     Route: 048
     Dates: start: 20050101
  4. NEURONTIN [Concomitant]
     Indication: EPILEPSY
     Route: 048
     Dates: start: 20070901
  5. LAMICTAL [Concomitant]
     Indication: EPILEPSY
     Dosage: 200MG
     Route: 048
     Dates: start: 19900101
  6. SYNTHROID [Concomitant]
     Indication: HYPOTHYROIDISM
     Dosage: .5MG
     Route: 048
     Dates: start: 19970101
  7. VITAMIN [Concomitant]
     Indication: PROPHYLAXIS
     Route: 048

REACTIONS (1)
  - VISUAL ACUITY REDUCED [None]
